FAERS Safety Report 9736321 (Version 1)
Quarter: 2013Q4

REPORT INFORMATION
  Report Type: Spontaneous
  Country: US (occurrence: None)
  Receive Date: 20131204
  Receipt Date: 20131204
  Transmission Date: 20140711
  Serious: Yes (Death, Hospitalization)
  Sender: FDA-Public Use
  Company Number: US-ALKEM-000375

PATIENT
  Age: 47 Year
  Sex: Female

DRUGS (2)
  1. AMLODIPINE [Suspect]
     Dosage: ORAL
     Route: 048
  2. CLONIDINE [Suspect]
     Dosage: ORAL
     Route: 048

REACTIONS (1)
  - Drug abuse [None]
